FAERS Safety Report 7231424-5 (Version None)
Quarter: 2011Q1

REPORT INFORMATION
  Report Type: 
  Country: None (occurrence: None)
  Receive Date: 20110118
  Receipt Date: 20110107
  Transmission Date: 20110831
  Serious: Yes (Other)
  Sender: FDA-Public Use
  Company Number: PHHY2010FR24470

PATIENT
  Sex: Female
  Weight: 63 kg

DRUGS (3)
  1. GLEEVEC [Suspect]
     Indication: CHRONIC MYELOID LEUKAEMIA
     Dosage: 400 MG, UNK
     Route: 048
     Dates: start: 20060601, end: 20100301
  2. ARANESP [Concomitant]
     Dosage: 500 MCG EVERY 15 DAYS
     Dates: end: 20100701
  3. TASIGNA [Concomitant]
     Dosage: UNK
     Dates: end: 20100410

REACTIONS (5)
  - MYELOFIBROSIS [None]
  - ANAEMIA [None]
  - ERYTHROBLASTOSIS [None]
  - BONE MARROW FAILURE [None]
  - FATIGUE [None]
